FAERS Safety Report 8195986 (Version 6)
Quarter: 2013Q2

REPORT INFORMATION
  Report Type: Spontaneous
  Country: AU (occurrence: AU)
  Receive Date: 20111024
  Receipt Date: 20130529
  Transmission Date: 20140414
  Serious: Yes (Death, Life-Threatening, Hospitalization, Other)
  Sender: FDA-Public Use
  Company Number: AU-UCBSA-043489

PATIENT
  Age: 66 Year
  Sex: Female

DRUGS (6)
  1. CIMZIA [Suspect]
     Indication: RHEUMATOID ARTHRITIS
     Route: 058
     Dates: start: 20110607, end: 20110906
  2. METHOTREXATE [Concomitant]
     Route: 048
     Dates: start: 2000, end: 201103
  3. METHOTREXATE [Concomitant]
     Route: 048
     Dates: start: 201103
  4. ARAVA [Concomitant]
     Indication: ARTHRITIS
     Dates: start: 201103
  5. PREDNISOLONE [Concomitant]
     Dosage: UP TO 10 MG PER DAY
     Route: 048
  6. BACTRIM [Concomitant]
     Indication: PNEUMOCYSTIS JIROVECII INFECTION
     Dates: start: 2011

REACTIONS (3)
  - Death [Fatal]
  - Interstitial lung disease [Not Recovered/Not Resolved]
  - Drug ineffective [Unknown]
